FAERS Safety Report 7217859-5 (Version None)
Quarter: 2010Q4

REPORT INFORMATION
  Report Type: 
  Country: None (occurrence: None)
  Receive Date: 20101230
  Receipt Date: 20101221
  Transmission Date: 20110411
  Serious: Yes (Death, Disabling, Other)
  Sender: FDA-Public Use
  Company Number: 2007-00581

PATIENT
  Age: 65 Year
  Sex: Female
  Weight: 38 kg

DRUGS (19)
  1. VELCADE [Suspect]
     Indication: MULTIPLE MYELOMA
     Dosage: 1.5 MG, UNK, INTRAVENOUS
     Route: 042
     Dates: start: 20061211, end: 20070113
  2. DEXAMETHASONE [Concomitant]
  3. MEROPENEM [Concomitant]
  4. COTRIM [Concomitant]
  5. VORICONAZOLE [Concomitant]
  6. MORPHINE HYDROCHLORIDE (MORPHINE HYDROCHLORIDE) [Concomitant]
  7. GASTER (FAMOTIDINE) [Concomitant]
  8. BENZYLPENICILLIN (BENZYLPENICILLIN) [Concomitant]
  9. RED BLOOD CELLS, CONCENTRATED (RED BLOOD CELLS, CONCENTRATED) [Concomitant]
  10. NEUPOGEN [Concomitant]
  11. PIPERACILLIN SODIUM [Concomitant]
  12. DIFLUCAN [Concomitant]
  13. ADONA (CARBAZOCHROME SODIUM SULFONATE) [Concomitant]
  14. TRANSAMIN (TRANEXAMIC ACID) [Concomitant]
  15. ATARAX [Concomitant]
  16. HALOPERIDOL [Concomitant]
  17. TIENAM (IMIPENEM, CILASTATIN) [Concomitant]
  18. ACYCLOVIR [Concomitant]
  19. PANTOSIN (PANTETHINE) [Concomitant]

REACTIONS (21)
  - ANAEMIA [None]
  - ASPARTATE AMINOTRANSFERASE INCREASED [None]
  - BLOOD LACTATE DEHYDROGENASE INCREASED [None]
  - BONE PAIN [None]
  - C-REACTIVE PROTEIN INCREASED [None]
  - CONSTIPATION [None]
  - DIARRHOEA [None]
  - FEBRILE NEUTROPENIA [None]
  - GLUCOSE URINE PRESENT [None]
  - HAEMATURIA [None]
  - HERPES ZOSTER [None]
  - HYPOAESTHESIA [None]
  - HYPONATRAEMIA [None]
  - INSOMNIA [None]
  - MALIGNANT NEOPLASM PROGRESSION [None]
  - MULTIPLE MYELOMA [None]
  - PLATELET COUNT DECREASED [None]
  - PROTEIN URINE PRESENT [None]
  - PYREXIA [None]
  - SENSORY DISTURBANCE [None]
  - WHITE BLOOD CELL COUNT DECREASED [None]
